FAERS Safety Report 5320115-3 (Version None)
Quarter: 2007Q2

REPORT INFORMATION
  Report Type: 
  Country: None (occurrence: None)
  Receive Date: 20070503
  Receipt Date: 20070425
  Transmission Date: 20071010
  Serious: Yes (Life-Threatening, Hospitalization)
  Sender: FDA-Public Use
  Company Number: 2006MP001059

PATIENT
  Age: 76 Year
  Sex: Male
  Weight: 84.369 kg

DRUGS (15)
  1. DACOGEN [Suspect]
     Indication: MYELODYSPLASTIC SYNDROME
     Dosage: SEE IMAGE
     Route: 042
     Dates: start: 20060220, end: 20060224
  2. DACOGEN [Suspect]
     Indication: MYELODYSPLASTIC SYNDROME
     Dosage: SEE IMAGE
     Route: 042
     Dates: start: 20060320, end: 20060324
  3. DACOGEN [Suspect]
     Indication: MYELODYSPLASTIC SYNDROME
     Dosage: SEE IMAGE
     Route: 042
     Dates: start: 20060417, end: 20060421
  4. DACOGEN [Suspect]
     Indication: MYELODYSPLASTIC SYNDROME
     Dosage: SEE IMAGE
     Route: 042
     Dates: start: 20060515, end: 20060519
  5. DACOGEN [Suspect]
     Indication: MYELODYSPLASTIC SYNDROME
     Dosage: SEE IMAGE
     Route: 042
     Dates: start: 20060612, end: 20060616
  6. DACOGEN [Suspect]
     Indication: MYELODYSPLASTIC SYNDROME
     Dosage: SEE IMAGE
     Route: 042
     Dates: start: 20060710, end: 20060714
  7. DACOGEN [Suspect]
     Indication: MYELODYSPLASTIC SYNDROME
     Dosage: SEE IMAGE
     Route: 042
     Dates: start: 20060807, end: 20060811
  8. DACOGEN [Suspect]
     Indication: MYELODYSPLASTIC SYNDROME
     Dosage: SEE IMAGE
     Route: 042
     Dates: start: 20060911, end: 20060915
  9. EXJADE [Concomitant]
  10. CYMBALTA [Concomitant]
  11. BENADRYL [Concomitant]
  12. LASIX [Concomitant]
  13. NEUPOGEN [Concomitant]
  14. CEFEPIME [Concomitant]
  15. 00 [Concomitant]

REACTIONS (11)
  - ANTI-PLATELET ANTIBODY POSITIVE [None]
  - HAEMOGLOBIN DECREASED [None]
  - HAEMOLYSIS [None]
  - HEPATIC STEATOSIS [None]
  - IDIOPATHIC THROMBOCYTOPENIC PURPURA [None]
  - NEUTROPENIA [None]
  - NO THERAPEUTIC RESPONSE [None]
  - PLATELET DESTRUCTION INCREASED [None]
  - PNEUMONIA [None]
  - SEPSIS [None]
  - SPLENOMEGALY [None]
